FAERS Safety Report 10906371 (Version 2)
Quarter: 2015Q2

REPORT INFORMATION
  Report Type: Report from Study
  Country: BR (occurrence: BR)
  Receive Date: 20150312
  Receipt Date: 20150415
  Transmission Date: 20150821
  Serious: Yes (Other)
  Sender: FDA-Public Use
  Company Number: PHHY2015BR028739

PATIENT
  Age: 15 Year
  Sex: Female
  Weight: 49 kg

DRUGS (3)
  1. RITALIN LA [Suspect]
     Active Substance: METHYLPHENIDATE HYDROCHLORIDE
     Dosage: 1 DF, QD (30 MG)
     Route: 048
     Dates: start: 201501
  2. RITALIN LA [Suspect]
     Active Substance: METHYLPHENIDATE HYDROCHLORIDE
     Indication: ATTENTION DEFICIT/HYPERACTIVITY DISORDER
     Dosage: 1 DF, QD (30 MG)
     Route: 048
  3. RITALIN LA [Suspect]
     Active Substance: METHYLPHENIDATE HYDROCHLORIDE
     Dosage: 1 DF, QD (20 MG)
     Route: 048
     Dates: start: 201411, end: 201412

REACTIONS (8)
  - Tachycardia [Recovering/Resolving]
  - Dyspnoea [Recovering/Resolving]
  - Palpitations [Not Recovered/Not Resolved]
  - Peripheral coldness [Recovered/Resolved]
  - Heart rate increased [Recovering/Resolving]
  - Presyncope [Recovered/Resolved]
  - Malaise [Recovering/Resolving]
  - Eating disorder [Not Recovered/Not Resolved]

NARRATIVE: CASE EVENT DATE: 201501
